FAERS Safety Report 7487763-6 (Version None)
Quarter: 2011Q2

REPORT INFORMATION
  Report Type: 
  Country: None (occurrence: None)
  Receive Date: 20110518
  Receipt Date: 20110506
  Transmission Date: 20111010
  Serious: Yes (Other)
  Sender: FDA-Public Use
  Company Number: PHHY2011FR34125

PATIENT
  Sex: Male

DRUGS (3)
  1. IBUPROFEN [Concomitant]
     Indication: INFLUENZA LIKE ILLNESS
     Dosage: UNK
     Dates: start: 20110301
  2. SERTRALINE HYDROCHLORIDE [Concomitant]
  3. EXTAVIA [Suspect]
     Indication: RELAPSING-REMITTING MULTIPLE SCLEROSIS
     Dosage: 1 ML, QW3
     Route: 058
     Dates: start: 20110301

REACTIONS (5)
  - INJECTION SITE PAIN [None]
  - WEIGHT DECREASED [None]
  - MELANODERMIA [None]
  - FATIGUE [None]
  - BLOOD PRESSURE SYSTOLIC DECREASED [None]
